FAERS Safety Report 21083908 (Version 1)
Quarter: 2022Q3

REPORT INFORMATION
  Report Type: Spontaneous
  Country: DE (occurrence: DE)
  Receive Date: 20220714
  Receipt Date: 20220714
  Transmission Date: 20221026
  Serious: No
  Sender: FDA-Public Use
  Company Number: DE-GW PHARMA-202111DEGW05591

PATIENT

DRUGS (9)
  1. CANNABIDIOL [Suspect]
     Active Substance: CANNABIDIOL
     Indication: Lennox-Gastaut syndrome
     Dosage: 7.5 MG/KG/DAY, 500 MILLIGRAM, QD
     Route: 048
     Dates: start: 202104
  2. VALPROIC ACID [Concomitant]
     Active Substance: VALPROIC ACID
     Indication: Lennox-Gastaut syndrome
     Dosage: 750 [87/FREE16.7]
     Route: 065
     Dates: start: 2018, end: 2021
  3. VALPROIC ACID [Concomitant]
     Active Substance: VALPROIC ACID
     Dosage: 600 [82/FREE10.8]
     Route: 065
     Dates: start: 2021
  4. LAMOTRIGINE [Concomitant]
     Active Substance: LAMOTRIGINE
     Indication: Lennox-Gastaut syndrome
     Dosage: 100 [12.4]
     Route: 065
     Dates: start: 2018, end: 2021
  5. LAMOTRIGINE [Concomitant]
     Active Substance: LAMOTRIGINE
     Dosage: 100 [10.8]
     Route: 065
     Dates: start: 2021
  6. PERAMPANEL [Concomitant]
     Active Substance: PERAMPANEL
     Indication: Lennox-Gastaut syndrome
     Dosage: 6 [0.83]
     Route: 065
     Dates: start: 2018, end: 2021
  7. PERAMPANEL [Concomitant]
     Active Substance: PERAMPANEL
     Dosage: 4 [0.51]
     Route: 065
     Dates: start: 2021
  8. CLOBAZAM [Concomitant]
     Active Substance: CLOBAZAM
     Indication: Lennox-Gastaut syndrome
     Dosage: 5 [0.09/DM-CLB0.56]
     Route: 065
     Dates: start: 2018, end: 2021
  9. CLOBAZAM [Concomitant]
     Active Substance: CLOBAZAM
     Dosage: 5 [0.10/DM-CLB1.02]
     Route: 065
     Dates: start: 2021

REACTIONS (2)
  - Fatigue [Unknown]
  - Therapeutic response unexpected [Unknown]

NARRATIVE: CASE EVENT DATE: 20210101
